FAERS Safety Report 7867342-9 (Version None)
Quarter: 2011Q4

REPORT INFORMATION
  Report Type: 
  Country: None (occurrence: None)
  Receive Date: 20111028
  Receipt Date: 20111024
  Transmission Date: 20120403
  Serious: Yes (Other)
  Sender: FDA-Public Use
  Company Number: SE-BRISTOL-MYERS SQUIBB COMPANY-16191132

PATIENT
  Age: 84 Year
  Sex: Female

DRUGS (1)
  1. HYDREA [Suspect]
     Indication: ESSENTIAL THROMBOCYTHAEMIA

REACTIONS (1)
  - DEMENTIA [None]
